FAERS Safety Report 21844407 (Version 2)
Quarter: 2023Q4

REPORT INFORMATION
  Report Type: Spontaneous
  Country: CN (occurrence: CN)
  Receive Date: 20230110
  Receipt Date: 20231129
  Transmission Date: 20240109
  Serious: Yes (Hospitalization, Other)
  Sender: FDA-Public Use
  Company Number: CN-FERRINGPH-2022FE07098

PATIENT

DRUGS (4)
  1. MENOTROPINS [Suspect]
     Active Substance: MENOTROPINS
     Indication: Assisted reproductive technology
     Dosage: 175 INTERNATIONAL UNIT
     Route: 065
  2. MENOTROPINS [Suspect]
     Active Substance: MENOTROPINS
     Dosage: 150 INTERNATIONAL UNIT, DAILY
     Route: 065
  3. TRIPTORELIN ACETATE [Suspect]
     Active Substance: TRIPTORELIN ACETATE
     Indication: Assisted reproductive technology
     Dosage: 3.75 MG
     Route: 065
  4. HUMAN CHORIONIC GONADOTROPIN [Suspect]
     Active Substance: GONADOTROPHIN, CHORIONIC
     Indication: Assisted reproductive technology
     Dosage: 250 UG, ONCE/SINGLE
     Route: 065

REACTIONS (3)
  - Brain oedema [Recovered/Resolved]
  - Hyponatraemia [Recovered/Resolved]
  - Ovarian hyperstimulation syndrome [Recovered/Resolved]
